FAERS Safety Report 8901553 (Version 2)
Quarter: 2013Q3

REPORT INFORMATION
  Report Type: Report from Study
  Country: JP (occurrence: JP)
  Receive Date: 20121108
  Receipt Date: 20130917
  Transmission Date: 20140515
  Serious: Yes (Hospitalization, Other)
  Sender: FDA-Public Use
  Company Number: JP-VERTEX PHARMACEUTICAL INC.-AE-2012-011481

PATIENT
  Age: 68 Year
  Sex: Female

DRUGS (13)
  1. VX-950 (TELAPREVIR) [Suspect]
     Indication: CHRONIC HEPATITIS C
     Dosage: 1500 MG, QD
     Route: 048
     Dates: start: 20120426, end: 20120628
  2. PEGINTRON [Suspect]
     Indication: CHRONIC HEPATITIS C
     Dosage: 0.83 ?G/KG, QW
     Route: 058
     Dates: start: 20120426, end: 20120501
  3. PEGINTRON [Suspect]
     Dosage: 0.42 ?G/KG, QW
     Route: 058
     Dates: start: 20120502, end: 20120530
  4. PEGINTRON [Suspect]
     Dosage: 0.21 ?G/KG, QW
     Route: 058
     Dates: start: 20120530
  5. PEGINTRON [Suspect]
     Dosage: 0.08 ?G/KG, QW
     Route: 058
     Dates: start: 20120614, end: 20120622
  6. REBETOL [Concomitant]
     Dosage: 400 MG, QD
     Route: 048
     Dates: start: 20120426, end: 20120516
  7. REBETOL [Concomitant]
     Dosage: 200 MG, QD
     Route: 048
     Dates: start: 20120517, end: 20120628
  8. PARIET [Concomitant]
     Dosage: 30 MG, QD
     Route: 048
     Dates: start: 20120426
  9. TALION [Concomitant]
     Dosage: 20 MG, QD
     Route: 048
     Dates: start: 20120426
  10. TALION [Concomitant]
     Dosage: 20 MG, QD
     Route: 048
     Dates: start: 20120614, end: 20120704
  11. PRIMPERAN [Concomitant]
     Dosage: UNK, PRN
     Route: 048
     Dates: start: 20120426, end: 20120628
  12. ZYLORIC [Concomitant]
     Dosage: 300 MG, QD
     Route: 048
     Dates: start: 20120502, end: 20120628
  13. PROZYME [Concomitant]
     Dosage: 210 MG, QD
     Route: 048
     Dates: start: 20120426

REACTIONS (1)
  - Bone marrow failure [Recovered/Resolved]
